FAERS Safety Report 7344633-1 (Version None)
Quarter: 2011Q1

REPORT INFORMATION
  Report Type: 
  Country: None (occurrence: None)
  Receive Date: 20110308
  Receipt Date: 20110308
  Transmission Date: 20110831
  Serious: Yes (Hospitalization)
  Sender: FDA-Public Use
  Company Number: None

PATIENT
  Age: 26 Year
  Sex: Female
  Weight: 102.9665 kg

DRUGS (3)
  1. ABILIFY [Suspect]
     Indication: ANXIETY
     Dosage: 5MG DAILY PO
     Route: 048
     Dates: start: 20110225, end: 20110228
  2. ABILIFY [Suspect]
     Indication: SUPPLEMENTATION THERAPY
     Dosage: 5MG DAILY PO
     Route: 048
     Dates: start: 20110225, end: 20110228
  3. ABILIFY [Suspect]
     Indication: DEPRESSION
     Dosage: 5MG DAILY PO
     Route: 048
     Dates: start: 20110225, end: 20110228

REACTIONS (8)
  - NAUSEA [None]
  - CHEST PAIN [None]
  - DYSPNOEA [None]
  - PANIC ATTACK [None]
  - DIZZINESS [None]
  - HEADACHE [None]
  - DEAFNESS TRANSITORY [None]
  - TUNNEL VISION [None]
